FAERS Safety Report 9950533 (Version 1)
Quarter: 2014Q1

REPORT INFORMATION
  Report Type: Report from Study
  Country: US (occurrence: US)
  Receive Date: 20140304
  Receipt Date: 20140304
  Transmission Date: 20141002
  Serious: No
  Sender: FDA-Public Use
  Company Number: US-ABBVIE-13P-163-1066945-00

PATIENT
  Age: 50 Year
  Sex: Female
  Weight: 81.72 kg

DRUGS (2)
  1. HUMIRA [Suspect]
     Indication: PSORIATIC ARTHROPATHY
     Route: 050
     Dates: start: 201207
  2. ANTIBIOTICS [Suspect]
     Indication: PHARYNGITIS
     Dates: start: 201301

REACTIONS (5)
  - Rash [Not Recovered/Not Resolved]
  - Fungal infection [Not Recovered/Not Resolved]
  - Psoriasis [Not Recovered/Not Resolved]
  - Drug effect incomplete [Not Recovered/Not Resolved]
  - Pharyngitis [Recovered/Resolved]
